FAERS Safety Report 5758723-8 (Version None)
Quarter: 2008Q2

REPORT INFORMATION
  Report Type: 
  Country: None (occurrence: None)
  Receive Date: 20080507
  Receipt Date: 20070604
  Transmission Date: 20081010
  Serious: Yes (Hospitalization)
  Sender: FDA-Public Use
  Company Number: 234498K07USA

PATIENT
  Age: 37 Year
  Sex: Female

DRUGS (4)
  1. REBIF [Suspect]
     Indication: MULTIPLE SCLEROSIS
     Dosage: 44 MCG, 3 IN 1 WEEKS, SUBCUTANEOUS
     Route: 058
     Dates: start: 20050523
  2. PAROXETINE HCL [Concomitant]
  3. SEROQUEL [Concomitant]
  4. THYROID MEDICATION (THYROID HORMONES) [Concomitant]

REACTIONS (7)
  - CHOKING [None]
  - CRYING [None]
  - MULTIPLE SCLEROSIS RELAPSE [None]
  - SKIN DISCOLOURATION [None]
  - SLEEP DISORDER [None]
  - SPEECH DISORDER [None]
  - TRICHORRHEXIS [None]
